FAERS Safety Report 8496380-0 (Version None)
Quarter: 2012Q3

REPORT INFORMATION
  Report Type: 
  Country: None (occurrence: None)
  Receive Date: 20120709
  Receipt Date: 20120705
  Transmission Date: 20120928
  Serious: No
  Sender: FDA-Public Use
  Company Number: US-PFIZER INC-2012153660

PATIENT
  Sex: Male
  Weight: 61 kg

DRUGS (6)
  1. BENICAR [Suspect]
     Indication: BLOOD PRESSURE ABNORMAL
     Dosage: 20 MG, DAILY
  2. DORZOLAMIDE HYDROCHLORIDE AND TIMOLOL MALEATE [Concomitant]
     Indication: GLAUCOMA
     Dosage: 1 DROP IN EACH EYE, DAILY
     Route: 047
  3. IBUPROFEN (ADVIL) [Suspect]
     Indication: PAIN IN EXTREMITY
     Dosage: UNKNOWN DOSE, TWICE DAILY
     Dates: start: 20120622
  4. XANAX [Concomitant]
     Indication: PANIC ATTACK
     Dosage: 0.5 MG, DAILY
  5. NORVASC [Suspect]
     Indication: BLOOD PRESSURE ABNORMAL
     Dosage: 5 MG, 2X/DAY
     Dates: start: 20090101
  6. IBUPROFEN (ADVIL) [Suspect]
     Indication: BACK PAIN
     Dosage: UNKNOWN DOSE, DAILY
     Dates: start: 20120601, end: 20120621

REACTIONS (7)
  - BACK PAIN [None]
  - PAIN IN EXTREMITY [None]
  - FEELING ABNORMAL [None]
  - OEDEMA PERIPHERAL [None]
  - ACCIDENT [None]
  - ASTHENIA [None]
  - BLOOD PRESSURE INADEQUATELY CONTROLLED [None]
